FAERS Safety Report 9501589 (Version 1)
Quarter: 2013Q3

REPORT INFORMATION
  Report Type: Spontaneous
  Country: CH (occurrence: CH)
  Receive Date: 20130905
  Receipt Date: 20130905
  Transmission Date: 20140515
  Serious: Yes (Death, Other)
  Sender: FDA-Public Use
  Company Number: CH-BAXTER-2013BAX033977

PATIENT
  Age: 82 Year
  Sex: Female
  Weight: 76 kg

DRUGS (11)
  1. ISOFLURAN BAXTER [Suspect]
     Indication: ANAESTHESIA
     Route: 055
     Dates: start: 20130806, end: 20130806
  2. THIOPENTAL [Suspect]
     Indication: ANAESTHESIA
     Route: 041
     Dates: start: 20130806, end: 20130806
  3. THIOPENTAL [Suspect]
     Indication: INHALATION THERAPY
  4. PARACETAMOL [Suspect]
     Indication: PAIN
     Route: 041
     Dates: start: 20130806
  5. NOVALGINE [Suspect]
     Indication: PAIN
     Dosage: 1G/DAY,4X/DAY AS NEEDED
     Route: 040
     Dates: start: 20130806, end: 20130808
  6. FRAGMIN [Suspect]
     Indication: PROPHYLAXIS
     Route: 040
     Dates: start: 20130807, end: 20130807
  7. FENTANYL [Suspect]
     Indication: PRODUCT USED FOR UNKNOWN INDICATION
     Route: 041
     Dates: start: 20130806, end: 20130806
  8. METHADONE [Suspect]
     Indication: PRODUCT USED FOR UNKNOWN INDICATION
     Route: 041
     Dates: start: 20130806, end: 20130806
  9. REMIFENTANIL [Suspect]
     Indication: PRODUCT USED FOR UNKNOWN INDICATION
     Route: 041
     Dates: start: 20130806, end: 20130806
  10. ATRACURIUM [Suspect]
     Indication: PRODUCT USED FOR UNKNOWN INDICATION
     Route: 042
     Dates: start: 20130806, end: 20130806
  11. KALCIPOS-D [Suspect]
     Indication: PRODUCT USED FOR UNKNOWN INDICATION
     Route: 065
     Dates: start: 20130806, end: 20130808

REACTIONS (8)
  - Pulmonary embolism [Fatal]
  - Hepatic failure [Fatal]
  - Renal failure acute [Fatal]
  - Thrombocytopenia [Fatal]
  - Coagulopathy [Unknown]
  - Cardiogenic shock [Unknown]
  - Haemorrhage [Unknown]
  - Blood pressure abnormal [Unknown]
